FAERS Safety Report 7478328-0 (Version None)
Quarter: 2011Q2

REPORT INFORMATION
  Report Type: 
  Country: None (occurrence: None)
  Receive Date: 20110513
  Receipt Date: 20110502
  Transmission Date: 20111010
  Serious: Yes (Life-Threatening, Hospitalization, Disabling, Other)
  Sender: FDA-Public Use
  Company Number: TR-SANOFI-AVENTIS-2011SA021384

PATIENT
  Age: 55 Year
  Sex: Male
  Weight: 73 kg

DRUGS (18)
  1. EPTIFIBATIDE [Suspect]
     Indication: ACUTE CORONARY SYNDROME
     Route: 042
     Dates: start: 20110405, end: 20110406
  2. ALDACTONE [Concomitant]
  3. BLINDED THERAPY [Suspect]
     Indication: ACUTE CORONARY SYNDROME
     Route: 042
     Dates: start: 20110405, end: 20110407
  4. INSULIN [Concomitant]
  5. ATORVASTATIN [Concomitant]
     Dates: start: 20110404, end: 20110404
  6. LEVEMIR [Concomitant]
     Dates: start: 20110405
  7. PLAVIX [Suspect]
     Route: 048
     Dates: start: 20110405, end: 20110406
  8. METPAMID [Concomitant]
     Dates: start: 20110404
  9. CORASPIN [Suspect]
     Indication: ACUTE CORONARY SYNDROME
     Route: 048
     Dates: start: 20110405
  10. PLAVIX [Suspect]
     Indication: ACUTE CORONARY SYNDROME
     Route: 048
     Dates: start: 20110404, end: 20110404
  11. AVELOX [Concomitant]
     Dates: start: 20110404, end: 20110404
  12. DESAL [Concomitant]
  13. LANSOR [Concomitant]
     Dates: start: 20110404, end: 20110404
  14. ACETYLCYSTEINE [Concomitant]
     Dates: start: 20110404
  15. ROCEPHIN [Concomitant]
  16. ENOXAPARIN SODIUM [Concomitant]
     Route: 058
     Dates: start: 20110404, end: 20110404
  17. REVIL VITAMIN B12 [Concomitant]
     Dates: start: 20110404, end: 20110404
  18. ASIST [Concomitant]

REACTIONS (2)
  - CARDIOGENIC SHOCK [None]
  - INTERVENTRICULAR SEPTUM RUPTURE [None]
